FAERS Safety Report 4934081-3 (Version None)
Quarter: 2006Q1

REPORT INFORMATION
  Report Type: 
  Country: None (occurrence: None)
  Receive Date: 20060303
  Receipt Date: 20060216
  Transmission Date: 20060701
  Serious: Yes (Other)
  Sender: FDA-Public Use
  Company Number: 05-000955

PATIENT
  Age: 50 Year
  Sex: Female
  Weight: 49.9 kg

DRUGS (14)
  1. DORYX [Suspect]
     Dosage: 100 MG
     Dates: start: 20051214, end: 20051217
  2. DORYX [Suspect]
     Indication: LYME DISEASE
     Dosage: 100 MG, BID, ORAL
     Dates: start: 20051001
  3. SUPRAX ^KLINGE^ (CEFIXIME TRIHYDRATE) [Concomitant]
  4. ALDACTONE [Concomitant]
  5. ZANTAC [Concomitant]
  6. RESTASIS [Concomitant]
  7. CALCIUM (CALCIUM) [Concomitant]
  8. MAGNESIUM (MAGNESIUM) [Concomitant]
  9. MULTIVITAMINS (PANTHENOL, ASCORBIC ACID, ERGOCALCIFEROL, FOLIC ACID, N [Concomitant]
  10. VITAMIN B COMPLEX CAP [Concomitant]
  11. HYDROEYE VITAMIN [Concomitant]
  12. SYNTHROID [Concomitant]
  13. BI-ESTROGEN [Concomitant]
  14. PROGESTERONE [Concomitant]

REACTIONS (5)
  - CHEST PAIN [None]
  - DYSPEPSIA [None]
  - DYSPHAGIA [None]
  - GASTROOESOPHAGEAL REFLUX DISEASE [None]
  - STOMACH DISCOMFORT [None]
